FAERS Safety Report 5156374-X (Version None)
Quarter: 2006Q4

REPORT INFORMATION
  Report Type: 
  Country: None (occurrence: None)
  Receive Date: 20061122
  Receipt Date: 20060529
  Transmission Date: 20070319
  Serious: Yes (Hospitalization)
  Sender: FDA-Public Use
  Company Number: PHBS2006NZ08036

PATIENT
  Age: 71 Year
  Sex: Female

DRUGS (2)
  1. PINDOLOL [Suspect]
     Indication: HYPERTENSION
     Dosage: 15 MG, QD
  2. CILAZAPRIL [Suspect]
     Dosage: 5 MG, QD

REACTIONS (4)
  - ANGIONEUROTIC OEDEMA [None]
  - DYSPNOEA [None]
  - SPEECH DISORDER [None]
  - SWOLLEN TONGUE [None]
